FAERS Safety Report 13667575 (Version 1)
Quarter: 2017Q2

REPORT INFORMATION
  Report Type: Spontaneous
  Country: US (occurrence: US)
  Receive Date: 20170619
  Receipt Date: 20170619
  Transmission Date: 20170830
  Serious: Yes (Other)
  Sender: FDA-Public Use
  Company Number: None

PATIENT
  Age: 57 Year
  Sex: Female

DRUGS (1)
  1. IBRANCE [Suspect]
     Active Substance: PALBOCICLIB
     Indication: BREAST CANCER
     Dosage: 100 MG DAILY FOR 21 DAYS 7 DAYS OFF ORAL
     Route: 048
     Dates: start: 20160709

REACTIONS (4)
  - Rhinorrhoea [None]
  - Headache [None]
  - Dizziness [None]
  - Lacrimation increased [None]

NARRATIVE: CASE EVENT DATE: 20170320
